FAERS Safety Report 15168385 (Version 5)
Quarter: 2018Q4

REPORT INFORMATION
  Report Type: Spontaneous
  Country: GB (occurrence: GB)
  Receive Date: 20180719
  Receipt Date: 20181009
  Transmission Date: 20190204
  Serious: Yes (Life-Threatening, Hospitalization, Other)
  Sender: FDA-Public Use
  Company Number: GB-GILEAD-2018-0349179

PATIENT
  Age: 66 Year
  Sex: Male
  Weight: 66.2 kg

DRUGS (2)
  1. OMEPRAZOLE. [Concomitant]
     Active Substance: OMEPRAZOLE
     Indication: GASTROOESOPHAGEAL REFLUX DISEASE
     Dosage: 20 MG, UNK
     Route: 048
  2. VOSEVI [Suspect]
     Active Substance: SOFOSBUVIR\VELPATASVIR\VOXILAPREVIR
     Indication: HEPATITIS C VIRUS TEST POSITIVE
     Dosage: UNK
     Route: 065
     Dates: start: 20180605, end: 20180712

REACTIONS (6)
  - Anxiety [Unknown]
  - Volvulus [Recovered/Resolved]
  - Product dose omission [Recovered/Resolved]
  - Malaise [Unknown]
  - Cerebral infarction [Recovered/Resolved]
  - Gastrointestinal carcinoma [Not Recovered/Not Resolved]

NARRATIVE: CASE EVENT DATE: 20180712
